FAERS Safety Report 5972669-1 (Version None)
Quarter: 2008Q4

REPORT INFORMATION
  Report Type: 
  Country: None (occurrence: None)
  Receive Date: 20081201
  Receipt Date: 20081120
  Transmission Date: 20090506
  Serious: Yes (Other)
  Sender: FDA-Public Use
  Company Number: JP-BAXTER-2008BH012857

PATIENT
  Age: 8 Year
  Sex: Male

DRUGS (7)
  1. ENDOXAN BAXTER [Suspect]
     Indication: MEDULLOBLASTOMA
     Dosage: DOSE UNIT:GRAMS PER METERS SQUARED
     Route: 065
  2. ETOPOSIDE [Suspect]
     Indication: MEDULLOBLASTOMA
     Route: 065
  3. CISPLATIN [Suspect]
     Indication: MEDULLOBLASTOMA
     Route: 065
  4. VINCRISTINE SULFATE [Suspect]
     Route: 065
  5. METHOTREXATE [Suspect]
     Indication: MEDULLOBLASTOMA
     Route: 065
  6. THIOTEPA [Concomitant]
     Indication: STEM CELL TRANSPLANT
  7. MELPHALAN [Concomitant]
     Indication: STEM CELL TRANSPLANT

REACTIONS (1)
  - BONE SARCOMA [None]
